FAERS Safety Report 20966744 (Version 1)
Quarter: 2022Q2

REPORT INFORMATION
  Report Type: Spontaneous
  Country: US (occurrence: None)
  Receive Date: 20220615
  Receipt Date: 20220615
  Transmission Date: 20220721
  Serious: Yes (Hospitalization)
  Sender: FDA-Public Use
  Company Number: None

PATIENT
  Sex: Male

DRUGS (2)
  1. ABIRATERONE ACETATE [Suspect]
     Active Substance: ABIRATERONE ACETATE
     Indication: Prostate cancer
     Dosage: 1000MG DAILY ORAL?
     Route: 048
     Dates: start: 20200723
  2. PREDNISONE INTENSOL [Suspect]
     Active Substance: PREDNISONE
     Indication: Prostate cancer
     Dosage: 5MG/ML TWICE DAILY ORAL
     Route: 048
     Dates: start: 20200723

REACTIONS (1)
  - Cerebrovascular accident [None]
